FAERS Safety Report 12313760 (Version 1)
Quarter: 2016Q2

REPORT INFORMATION
  Report Type: Spontaneous
  Country: US (occurrence: US)
  Receive Date: 20160428
  Receipt Date: 20160428
  Transmission Date: 20160815
  Serious: No
  Sender: FDA-Public Use
  Company Number: US-BAUSCH-BL-2015-012193

PATIENT
  Age: 62 Year
  Sex: Female

DRUGS (3)
  1. ZYCLARA [Suspect]
     Active Substance: IMIQUIMOD
     Indication: SQUAMOUS CELL CARCINOMA
     Route: 061
     Dates: start: 201410, end: 2014
  2. BC POWDER PACKETS [Concomitant]
     Indication: HEADACHE
  3. TYLENOL EXTRA STRENGTH [Concomitant]
     Active Substance: ACETAMINOPHEN
     Indication: HEADACHE

REACTIONS (2)
  - Product odour abnormal [Not Recovered/Not Resolved]
  - Tinnitus [Not Recovered/Not Resolved]

NARRATIVE: CASE EVENT DATE: 201410
